FAERS Safety Report 21385102 (Version 1)
Quarter: 2022Q3

REPORT INFORMATION
  Report Type: Report from Study
  Country: CN (occurrence: CN)
  Receive Date: 20220928
  Receipt Date: 20220928
  Transmission Date: 20221027
  Serious: Yes (Death, Life-Threatening, Hospitalization, Disabling, Other)
  Sender: FDA-Public Use
  Company Number: CN-JNJFOC-20220940927

PATIENT

DRUGS (3)
  1. INVOKANA [Suspect]
     Active Substance: CANAGLIFLOZIN
     Indication: Diabetes mellitus
     Route: 048
  2. INVOKANA [Suspect]
     Active Substance: CANAGLIFLOZIN
     Indication: Insulin resistance
  3. INVOKANA [Suspect]
     Active Substance: CANAGLIFLOZIN
     Indication: Type 1 diabetes mellitus

REACTIONS (77)
  - Death [Fatal]
  - Diabetic ketoacidosis [Unknown]
  - Euglycaemic diabetic ketoacidosis [Unknown]
  - Renal failure [Unknown]
  - Ketoacidosis [Unknown]
  - Osteomyelitis [Unknown]
  - Acute kidney injury [Unknown]
  - Sepsis [Unknown]
  - Myocardial infarction [Unknown]
  - Renal impairment [Unknown]
  - Cerebrovascular accident [Unknown]
  - Pancreatitis [Unknown]
  - Sepsis [Unknown]
  - Hyperkalaemia [Unknown]
  - Fournier^s gangrene [Unknown]
  - Renal injury [Unknown]
  - Osteomyelitis acute [Unknown]
  - Osteomyelitis chronic [Unknown]
  - Gangrene [Unknown]
  - Necrotising fasciitis [Unknown]
  - Urosepsis [Unknown]
  - Pyelonephritis [Unknown]
  - Metabolic acidosis [Unknown]
  - Limb amputation [Unknown]
  - Leg amputation [Unknown]
  - Toe amputation [Unknown]
  - Amputation [Unknown]
  - Foot amputation [Unknown]
  - Vomiting [Unknown]
  - Vulvovaginal mycotic infection [Unknown]
  - Fungal infection [Unknown]
  - Urinary tract infection [Unknown]
  - Weight decreased [Unknown]
  - Injury [Unknown]
  - Rash [Unknown]
  - Genital infection fungal [Unknown]
  - Adverse drug reaction [Unknown]
  - Rash [Unknown]
  - Nausea [Unknown]
  - Pollakiuria [Unknown]
  - Dizziness [Unknown]
  - Glomerular filtration rate decreased [Unknown]
  - Blood glucose increased [Unknown]
  - Glycosylated haemoglobin increased [Unknown]
  - Polyuria [Unknown]
  - Dehydration [Unknown]
  - Urticaria [Unknown]
  - Discomfort [Unknown]
  - Blood creatinine increased [Unknown]
  - Balanoposthitis [Unknown]
  - Wound [Unknown]
  - Vulvovaginal mycotic infection [Unknown]
  - Flank pain [Unknown]
  - Micturition disorder [Unknown]
  - Nocturia [Unknown]
  - Blood urine present [Unknown]
  - Renal pain [Unknown]
  - Haematuria [Unknown]
  - Pruritus genital [Unknown]
  - Vaginal infection [Unknown]
  - Vulvovaginal pruritus [Unknown]
  - Urine ketone body present [Unknown]
  - Wound dehiscence [Unknown]
  - Thirst [Unknown]
  - Cardiovascular disorder [Unknown]
  - Peripheral ischaemia [Unknown]
  - Skin ulcer [Unknown]
  - Diarrhoea [Unknown]
  - Drug ineffective [Unknown]
  - Product use issue [Unknown]
  - Off label use [Unknown]
  - Wrong technique in product usage process [Unknown]
  - Product dose omission issue [Unknown]
  - Product prescribing error [Unknown]
  - Treatment noncompliance [Unknown]
  - Inappropriate schedule of product administration [Unknown]
  - Accidental exposure to product [Unknown]
